FAERS Safety Report 7446215-X (Version None)
Quarter: 2011Q2

REPORT INFORMATION
  Report Type: 
  Country: None (occurrence: None)
  Receive Date: 20110429
  Receipt Date: 20110223
  Transmission Date: 20111010
  Serious: No
  Sender: FDA-Public Use
  Company Number: US-JNJFOC-20101206521

PATIENT
  Sex: Female
  Weight: 40.82 kg

DRUGS (4)
  1. INVEGA SUSTENNA [Suspect]
     Route: 030
  2. INVEGA SUSTENNA [Suspect]
     Indication: SCHIZOPHRENIA
     Route: 030
  3. INVEGA SUSTENNA [Suspect]
     Indication: OBSESSIVE-COMPULSIVE DISORDER
     Route: 030
  4. INVEGA SUSTENNA [Suspect]
     Route: 030

REACTIONS (4)
  - INJECTION SITE REACTION [None]
  - PRODUCT QUALITY ISSUE [None]
  - FATIGUE [None]
  - ABNORMAL LOSS OF WEIGHT [None]
